FAERS Safety Report 7795797-7 (Version None)
Quarter: 2011Q4

REPORT INFORMATION
  Report Type: 
  Country: None (occurrence: None)
  Receive Date: 20111004
  Receipt Date: 20110923
  Transmission Date: 20120403
  Serious: Yes (Hospitalization)
  Sender: FDA-Public Use
  Company Number: US-UCBSA-041686

PATIENT
  Sex: Female
  Weight: 138.3 kg

DRUGS (21)
  1. SINGULAIR [Concomitant]
     Indication: ASTHMA
     Route: 055
     Dates: start: 20110401
  2. VERAMIST [Concomitant]
     Indication: NASAL DISCOMFORT
     Dosage: 1 SPRAY
     Route: 055
     Dates: start: 20110801, end: 20110913
  3. LISINOPRIL [Concomitant]
     Indication: HYPERTENSION
     Dosage: 10/125 MG
     Dates: start: 20110820, end: 20110913
  4. IBUPROFEN [Concomitant]
     Indication: RHEUMATOID ARTHRITIS
     Dates: start: 20070101, end: 20110531
  5. IBUPROFEN [Concomitant]
     Dates: start: 20070101, end: 20110531
  6. ZITHROMAX [Concomitant]
     Indication: SINUSITIS
     Dates: start: 20110804, end: 20110804
  7. ALBUTEROL [Concomitant]
     Indication: ASTHMA
     Dosage: 1 PUFF AND ALSO VIA NEBULIZER AS NECESSARY
     Route: 055
     Dates: start: 19930101
  8. MOBIC [Concomitant]
     Indication: RHEUMATOID ARTHRITIS
     Dates: start: 20110601, end: 20110913
  9. NEOSPORIN [Concomitant]
     Indication: NASAL DISCOMFORT
     Dosage: 1 APP
     Dates: start: 20110801, end: 20110913
  10. CERTOLIZUMAB PEGOL [Suspect]
     Dosage: 400 MG, NO. OF DOSES RECEIVED 3
     Route: 058
     Dates: start: 20110622, end: 20110817
  11. CYMBALTA [Concomitant]
     Indication: ARTHRALGIA
     Dates: start: 20110601, end: 20110701
  12. ZITHROMAX [Concomitant]
     Dates: start: 20110805, end: 20110809
  13. ULTRAM [Concomitant]
     Indication: RHEUMATOID ARTHRITIS
     Dates: start: 20090528, end: 20110531
  14. ADVAIR DISKUS 100/50 [Concomitant]
     Indication: ASTHMA
     Route: 055
     Dates: start: 20110401, end: 20110627
  15. CYMBALTA [Concomitant]
     Dates: start: 20110702, end: 20110913
  16. VOLTAREN [Concomitant]
     Indication: ARTHRALGIA
     Dosage: 1 APP
     Route: 061
     Dates: start: 20100324, end: 20110913
  17. ADVAIR DISKUS 100/50 [Concomitant]
     Route: 055
     Dates: start: 20110628
  18. DEXILANT [Concomitant]
     Indication: GASTROOESOPHAGEAL REFLUX DISEASE
     Dates: start: 20110622, end: 20110913
  19. CERTOLIZUMAB PEGOL [Suspect]
     Indication: RHEUMATOID ARTHRITIS
     Dosage: 200 MG, NO. OF DOSES RECEIVED 3
     Route: 058
     Dates: start: 20110817, end: 20110913
  20. CALCIUM CARBONATE [Concomitant]
     Indication: GASTROOESOPHAGEAL REFLUX DISEASE
     Dosage: 2 TABS
     Dates: start: 20090101
  21. HYDROCHLOROTHIAZIDE [Concomitant]
     Indication: OEDEMA PERIPHERAL
     Dates: start: 20110601, end: 20110819

REACTIONS (1)
  - CARDIOMYOPATHY [None]
